FAERS Safety Report 8624955-4 (Version None)
Quarter: 2012Q3

REPORT INFORMATION
  Report Type: 
  Country: None (occurrence: None)
  Receive Date: 20120827
  Receipt Date: 20120822
  Transmission Date: 20120928
  Serious: Yes (Death)
  Sender: FDA-Public Use
  Company Number: US-PFIZER INC-2012187363

PATIENT
  Age: 45 Year
  Sex: Male

DRUGS (2)
  1. EFFEXOR XR [Suspect]
     Dosage: 300MG, EVERY MORNING
     Route: 048
     Dates: start: 20111222
  2. ALPRAZOLAM [Suspect]
     Dosage: 3.5 MG, 1X/DAY
     Dates: start: 20120117, end: 20120307

REACTIONS (1)
  - DEATH [None]
